FAERS Safety Report 9663691 (Version 2)
Quarter: 2017Q2

REPORT INFORMATION
  Report Type: Report from Study
  Country: BR (occurrence: BR)
  Receive Date: 20131101
  Receipt Date: 20170628
  Transmission Date: 20170830
  Serious: Yes (Death)
  Sender: FDA-Public Use
  Company Number: PHHY2013BR123632

PATIENT
  Sex: Female

DRUGS (1)
  1. ACLASTA [Suspect]
     Active Substance: ZOLEDRONIC ACID
     Indication: PRODUCT USED FOR UNKNOWN INDICATION
     Dosage: 1 DF (5 MG/100 ML), Q12MO
     Route: 042

REACTIONS (5)
  - Asthenia [Unknown]
  - Depressed mood [Unknown]
  - Dysphagia [Unknown]
  - Abasia [Unknown]
  - Death [Fatal]

NARRATIVE: CASE EVENT DATE: 20130907
